FAERS Safety Report 4754389-4 (Version None)
Quarter: 2005Q3

REPORT INFORMATION
  Report Type: 
  Country: None (occurrence: None)
  Receive Date: 20050829
  Receipt Date: 20050311
  Transmission Date: 20060218
  Serious: Yes (Hospitalization)
  Sender: FDA-Public Use
  Company Number: US-AMGEN-US120412

PATIENT
  Sex: Male
  Weight: 93.5 kg

DRUGS (8)
  1. ARANESP [Suspect]
     Indication: DIALYSIS
     Route: 042
     Dates: start: 20040701
  2. CALCITRIOL [Concomitant]
  3. PHOSLO [Concomitant]
  4. VALSARTAN [Concomitant]
  5. ZOCOR [Concomitant]
  6. DIATX [Concomitant]
  7. BENADRYL [Concomitant]
  8. TOPROL-XL [Concomitant]

REACTIONS (8)
  - CARDIAC VALVE VEGETATION [None]
  - CEREBRAL INFARCTION [None]
  - CEREBROVASCULAR ACCIDENT [None]
  - DEHYDRATION [None]
  - ENDOCARDITIS [None]
  - HYPERKALAEMIA [None]
  - SEPTIC EMBOLUS [None]
  - TRICUSPID VALVE DISEASE [None]
